FAERS Safety Report 4840060-7 (Version None)
Quarter: 2005Q4

REPORT INFORMATION
  Report Type: 
  Country: None (occurrence: None)
  Receive Date: 20051125
  Receipt Date: 20051111
  Transmission Date: 20060501
  Serious: Yes (Other)
  Sender: FDA-Public Use
  Company Number: 2005155278

PATIENT
  Age: 17 Year
  Sex: Male
  Weight: 65.7716 kg

DRUGS (1)
  1. BENYLIN DM-E EXTRA STRENGTH (DEXTROMETHORPHAN, GUAIFENESIN) [Suspect]
     Indication: ACCIDENTAL OVERDOSE
     Dosage: 3 BOTTLES ONCE, ORAL
     Route: 048
     Dates: start: 20051110, end: 20051110

REACTIONS (3)
  - ACCIDENTAL EXPOSURE [None]
  - HEADACHE [None]
  - MULTIPLE DRUG OVERDOSE [None]
